FAERS Safety Report 5077330-6 (Version None)
Quarter: 2006Q3

REPORT INFORMATION
  Report Type: 
  Country: None (occurrence: None)
  Receive Date: 20060810
  Receipt Date: 20060125
  Transmission Date: 20061208
  Serious: No
  Sender: FDA-Public Use
  Company Number: A0591128A

PATIENT
  Age: 30 Year
  Sex: Female
  Weight: 81.8 kg

DRUGS (1)
  1. PAROXETINE HCL [Suspect]
     Indication: DRUG USE FOR UNKNOWN INDICATION
     Dosage: 20MG PER DAY
     Route: 048
     Dates: start: 20050629

REACTIONS (4)
  - DRUG ERUPTION [None]
  - PRURITUS [None]
  - RASH PAPULAR [None]
  - URTICARIA [None]
